FAERS Safety Report 8282400-5 (Version None)
Quarter: 2012Q2

REPORT INFORMATION
  Report Type: 
  Country: None (occurrence: None)
  Receive Date: 20120413
  Receipt Date: 20120406
  Transmission Date: 20120825
  Serious: Yes (Other)
  Sender: FDA-Public Use
  Company Number: US-JNJFOC-20120403660

PATIENT
  Sex: Female

DRUGS (15)
  1. DOXORUBICIN HCL [Suspect]
     Dosage: CYCLE 3
     Route: 042
  2. DOCETAXEL [Suspect]
     Dosage: CYCLE 3
     Route: 042
  3. CYCLOPHOSPHAMIDE [Suspect]
     Dosage: CYCLE 2
     Route: 042
  4. CYCLOPHOSPHAMIDE [Suspect]
     Dosage: CYCLE 4
     Route: 042
  5. DOXORUBICIN HCL [Suspect]
     Indication: BREAST CANCER
     Dosage: CYCLE 4
     Route: 042
  6. CYCLOPHOSPHAMIDE [Suspect]
     Dosage: CYCLE 3
     Route: 042
  7. DOXORUBICIN HCL [Suspect]
     Dosage: CYCLE 2
     Route: 042
  8. NOV-002 [Suspect]
     Route: 058
  9. NOV-002 [Suspect]
     Indication: BREAST CANCER
     Dosage: ADMINISTERED APPROXIMATELY 3 HR APART
     Route: 042
  10. DOCETAXEL [Suspect]
     Indication: BREAST CANCER
     Dosage: CYCLE 1
     Route: 042
  11. DOCETAXEL [Suspect]
     Dosage: CYCLE 4
     Route: 042
  12. DOCETAXEL [Suspect]
     Dosage: CYCLE 2
     Route: 042
  13. NOV-002 [Suspect]
     Route: 042
  14. DOXORUBICIN HCL [Suspect]
     Dosage: CYCLE 1
     Route: 042
  15. CYCLOPHOSPHAMIDE [Suspect]
     Indication: BREAST CANCER
     Dosage: CYCLE 1
     Route: 042

REACTIONS (10)
  - DIARRHOEA [None]
  - CONSTIPATION [None]
  - FEBRILE NEUTROPENIA [None]
  - ABDOMINAL PAIN [None]
  - NAUSEA [None]
  - PERIPHERAL SENSORY NEUROPATHY [None]
  - FATIGUE [None]
  - PALMAR-PLANTAR ERYTHRODYSAESTHESIA SYNDROME [None]
  - VOMITING [None]
  - NEUTROPENIA [None]
